FAERS Safety Report 4734772-3 (Version None)
Quarter: 2005Q3

REPORT INFORMATION
  Report Type: 
  Country: None (occurrence: None)
  Receive Date: 20050804
  Receipt Date: 20050727
  Transmission Date: 20060218
  Serious: Yes (Hospitalization, Other)
  Sender: FDA-Public Use
  Company Number: GB-GLAXOSMITHKLINE-B0389003A

PATIENT
  Age: 82 Year
  Sex: Male

DRUGS (11)
  1. DUTASTERIDE [Suspect]
     Dosage: 500MCG PER DAY
     Route: 048
     Dates: start: 20050628, end: 20050708
  2. AMITRIPTYLINE [Concomitant]
     Indication: PAIN
     Dosage: 25MG PER DAY
     Route: 048
     Dates: start: 20050429
  3. HYDROXYZINE [Concomitant]
     Indication: PRURITUS
     Dosage: 10MG PER DAY
     Route: 048
     Dates: start: 20050429
  4. OMEPRAZOLE [Concomitant]
     Indication: DYSPEPSIA
     Dosage: 20MG PER DAY
     Route: 048
     Dates: start: 20050429
  5. ZOMORPH [Concomitant]
     Indication: PAIN
     Dosage: 20MG PER DAY
     Route: 048
     Dates: start: 20050429
  6. MONOMAX [Concomitant]
     Indication: PAIN
     Dosage: 120MG PER DAY
     Route: 048
     Dates: start: 20050422
  7. PREDNISOLONE [Concomitant]
     Indication: ECZEMA
     Dosage: 5MG PER DAY
     Route: 048
     Dates: start: 20050119
  8. CANDESARTAN [Concomitant]
     Dosage: 2MG PER DAY
     Route: 048
     Dates: start: 20040308
  9. MIXTARD HUMAN 70/30 [Concomitant]
     Indication: DIABETES MELLITUS
     Route: 058
     Dates: start: 20040708
  10. BUMETANIDE [Concomitant]
     Dosage: 2MG PER DAY
     Route: 048
     Dates: start: 20040307
  11. ALLOPURINOL [Concomitant]
     Indication: GOUT
     Dosage: 300MG PER DAY
     Route: 048
     Dates: start: 20000313

REACTIONS (1)
  - CONFUSIONAL STATE [None]
